FAERS Safety Report 22960163 (Version 2)
Quarter: 2023Q4

REPORT INFORMATION
  Report Type: Other
  Country: GB (occurrence: GB)
  Receive Date: 20230920
  Receipt Date: 20231004
  Transmission Date: 20240109
  Serious: Yes (Other)
  Sender: FDA-Public Use
  Company Number: GB-TAKEDA-2023TUS079442

PATIENT

DRUGS (3)
  1. DEXAMETHASONE [Suspect]
     Active Substance: DEXAMETHASONE
     Indication: Product used for unknown indication
     Dosage: UNK; ;
     Route: 050
  2. REVLIMID [Suspect]
     Active Substance: LENALIDOMIDE
     Indication: Disease progression
     Dosage: 25 MILLIGRAM;
     Route: 050
  3. NINLARO [Suspect]
     Active Substance: IXAZOMIB CITRATE
     Indication: Disease progression
     Dosage: 4 MILLIGRAM;
     Route: 050

REACTIONS (2)
  - Neutropenia [Recovered/Resolved]
  - Diarrhoea [Recovered/Resolved]
